FAERS Safety Report 5588871-7 (Version None)
Quarter: 2008Q1

REPORT INFORMATION
  Report Type: 
  Country: None (occurrence: None)
  Receive Date: 20080111
  Receipt Date: 20080104
  Transmission Date: 20080703
  Serious: Yes (Other)
  Sender: FDA-Public Use
  Company Number: GB-RANBAXY-2008RR-12373

PATIENT

DRUGS (1)
  1. FLUOXETINE 20MG CAPSULES [Suspect]
     Indication: STRESS
     Dosage: 40 MG, QD
     Route: 048

REACTIONS (5)
  - HYPERTENSION [None]
  - MACULAR OEDEMA [None]
  - RETINAL VEIN OCCLUSION [None]
  - VISION BLURRED [None]
  - VISUAL ACUITY REDUCED [None]
